FAERS Safety Report 14471296 (Version 1)
Quarter: 2018Q1

REPORT INFORMATION
  Report Type: Spontaneous
  Country: US (occurrence: US)
  Receive Date: 20180131
  Receipt Date: 20180131
  Transmission Date: 20180509
  Serious: No
  Sender: FDA-Public Use
  Company Number: None

PATIENT
  Age: 53 Year
  Sex: Female
  Weight: 47.63 kg

DRUGS (2)
  1. ALLEGRA ALLERGY [Suspect]
     Active Substance: FEXOFENADINE HYDROCHLORIDE
     Indication: WHITE BLOOD CELL DISORDER
     Dosage: 45 MG 2X ORAL
     Route: 048
     Dates: start: 201702, end: 201704
  2. SODIUM CROMOLYN 700ML [Suspect]
     Active Substance: CROMOLYN SODIUM
     Indication: WHITE BLOOD CELL DISORDER
     Dosage: 200 ML 3X ORAL
     Route: 048
     Dates: start: 201702, end: 201706

REACTIONS (4)
  - Gastrooesophageal reflux disease [None]
  - Condition aggravated [None]
  - Product substitution issue [None]
  - Haematochezia [None]

NARRATIVE: CASE EVENT DATE: 20170606
